FAERS Safety Report 13748538 (Version 1)
Quarter: 2017Q3

REPORT INFORMATION
  Report Type: Spontaneous
  Country: FR (occurrence: FR)
  Receive Date: 20170713
  Receipt Date: 20170713
  Transmission Date: 20171127
  Serious: Yes (Hospitalization)
  Sender: FDA-Public Use
  Company Number: FR-AUROBINDO-AUR-APL-2017-36833

PATIENT
  Age: 27 Year
  Sex: Female

DRUGS (7)
  1. ZAMUDOL [Concomitant]
     Active Substance: TRAMADOL HYDROCHLORIDE
     Indication: PAIN
  2. CIPROFLOXACIN ARROW GENERIQUES 750 MG FILM-COATED TABLET [Suspect]
     Active Substance: CIPROFLOXACIN
     Indication: ARTHRITIS INFECTIVE
     Dosage: 750 MG, TWO TIMES A DAY
     Route: 048
     Dates: start: 20170511, end: 20170531
  3. CEFEPIME [Concomitant]
     Active Substance: CEFEPIME HYDROCHLORIDE
     Indication: ARTHRITIS INFECTIVE
     Dosage: UNK
     Dates: start: 20170424, end: 20170511
  4. VANCOMYCINE MYLAN                  /00314401/ [Suspect]
     Active Substance: VANCOMYCIN
     Indication: ARTHRITIS INFECTIVE
     Dosage: 1.5 G, TWO TIMES A DAY
     Route: 042
     Dates: start: 20170424, end: 20170531
  5. ACTISKENAN [Concomitant]
     Active Substance: MORPHINE SULFATE
     Indication: PAIN
     Dosage: UNK
     Dates: start: 201703
  6. OFLOXACINE [Concomitant]
     Active Substance: OFLOXACIN
     Indication: ARTHRITIS INFECTIVE
     Dosage: UNK
     Dates: start: 20170426, end: 20170511
  7. CEFOXITINE PANPHARMA [Suspect]
     Active Substance: CEFOXITIN SODIUM
     Indication: ARTHRITIS INFECTIVE
     Dosage: 3 G, TWO TIMES A DAY
     Route: 042
     Dates: start: 20170511, end: 20170531

REACTIONS (1)
  - Drug reaction with eosinophilia and systemic symptoms [Recovered/Resolved]

NARRATIVE: CASE EVENT DATE: 20170529
